FAERS Safety Report 6743914-X (Version None)
Quarter: 2010Q2

REPORT INFORMATION
  Report Type: 
  Country: None (occurrence: None)
  Receive Date: 20100527
  Receipt Date: 20100518
  Transmission Date: 20101027
  Serious: Yes (Disabling, Other)
  Sender: FDA-Public Use
  Company Number: US-ELI_LILLY_AND_COMPANY-US201005004583

PATIENT
  Sex: Male
  Weight: 88.68 kg

DRUGS (14)
  1. PEMETREXED [Suspect]
     Indication: NON-SMALL CELL LUNG CANCER
     Dosage: 836 MG, OTHER
     Route: 042
     Dates: start: 20100402
  2. GEMCITABINE HYDROCHLORIDE [Suspect]
     Indication: NON-SMALL CELL LUNG CANCER
     Dosage: 2508 MG, OTHER
     Route: 042
     Dates: start: 20100402
  3. BEVACIZUMAB [Suspect]
     Indication: NON-SMALL CELL LUNG CANCER
     Dosage: 886.8 MG, OTHER
     Route: 042
     Dates: start: 20100402
  4. FOLIC ACID [Concomitant]
     Dosage: 1000 UG, UNK
     Route: 048
     Dates: start: 20100326
  5. SIMVASTATIN [Concomitant]
     Dosage: 40 MG, DAILY (1/D)
     Route: 048
  6. HYDROCHLOROTHIAZIDE [Concomitant]
     Dosage: 12.5 MG, UNK
     Route: 048
  7. METOPROLOL [Concomitant]
     Dosage: 25 MG, UNK
     Route: 048
  8. OXYBUTYNIN [Concomitant]
     Dosage: 15 MG, DAILY (1/D)
     Route: 048
  9. ASPIRIN [Concomitant]
     Dosage: 81 MG, DAILY (1/D)
     Route: 048
  10. DEXAMETHASONE [Concomitant]
     Dosage: 4 MG, OTHER
     Route: 048
  11. EUCERIN CREME [Concomitant]
     Dosage: UNK, AS NEEDED
  12. NICODERM [Concomitant]
     Dates: start: 20100402
  13. COMPAZINE [Concomitant]
     Dosage: 10 MEQ, DAILY (1/D)
     Route: 048
     Dates: start: 20100326
  14. TRIAMCINOLONE ACETONIDE [Concomitant]
     Dosage: UNK, AS NEEDED

REACTIONS (1)
  - RETINAL HAEMORRHAGE [None]
